FAERS Safety Report 9843381 (Version 1)
Quarter: 2013Q4

REPORT INFORMATION
  Report Type: Spontaneous
  Country: US (occurrence: None)
  Receive Date: 20131223
  Receipt Date: 20131223
  Transmission Date: 20140711
  Serious: No
  Sender: FDA-Public Use
  Company Number: 218605LEO

PATIENT
  Age: 56 Year
  Sex: Male

DRUGS (2)
  1. PICATO GEL [Suspect]
     Indication: PHOTODERMATOSIS
     Route: 061
     Dates: start: 20120809, end: 20120811
  2. METOPROLOL (METOPROLOL) [Concomitant]

REACTIONS (4)
  - Lacrimation increased [None]
  - Periorbital oedema [None]
  - Incorrect drug administration duration [None]
  - Incorrect drug administration duration [None]
